FAERS Safety Report 25996100 (Version 1)
Quarter: 2025Q4

REPORT INFORMATION
  Report Type: Spontaneous
  Country: US (occurrence: None)
  Receive Date: 20251104
  Receipt Date: 20251104
  Transmission Date: 20260118
  Serious: Yes (Hospitalization)
  Sender: FDA-CTU
  Company Number: None

PATIENT
  Age: 77 Year
  Sex: Male
  Weight: 99 kg

DRUGS (1)
  1. SKYRIZI [Suspect]
     Active Substance: RISANKIZUMAB-RZAA
     Indication: Crohn^s disease
     Dosage: 360 MG/MG EVERY 8 WEEKS SUBCUTANEOUS?
     Route: 058
     Dates: start: 20250804

REACTIONS (3)
  - Gastrointestinal disorder [None]
  - Rash [None]
  - Atrial fibrillation [None]

NARRATIVE: CASE EVENT DATE: 20251021
